FAERS Safety Report 9548252 (Version 1)
Quarter: 2013Q3

REPORT INFORMATION
  Report Type: Report from Study
  Country: CA (occurrence: CA)
  Receive Date: 20130924
  Receipt Date: 20130924
  Transmission Date: 20140515
  Serious: Yes (Hospitalization, Other)
  Sender: FDA-Public Use
  Company Number: CA-JNJFOC-20130910399

PATIENT
  Age: 49 Year
  Sex: Female
  Weight: 87 kg

DRUGS (6)
  1. REMICADE [Suspect]
     Indication: CROHN^S DISEASE
     Dosage: 27TH INFUSION
     Route: 042
  2. REMICADE [Suspect]
     Indication: CROHN^S DISEASE
     Route: 042
  3. APO-CEPHALEX [Suspect]
     Indication: INCISION SITE ERYTHEMA
     Route: 065
     Dates: start: 20130901
  4. VITAMIN D [Concomitant]
     Route: 065
  5. SALOFALK [Concomitant]
     Route: 065
  6. IRON [Concomitant]
     Route: 065

REACTIONS (3)
  - Hernia [Unknown]
  - Urticaria [Recovered/Resolved]
  - Incision site erythema [Recovered/Resolved]
